FAERS Safety Report 24300365 (Version 3)
Quarter: 2025Q1

REPORT INFORMATION
  Report Type: Report from Study
  Country: US (occurrence: US)
  Receive Date: 20240909
  Receipt Date: 20250130
  Transmission Date: 20250409
  Serious: Yes (Hospitalization)
  Sender: TAKEDA
  Company Number: US-TAKEDA-2024TUS088933

PATIENT
  Sex: Male

DRUGS (4)
  1. ADAMTS13, RECOMBINANT-KRHN [Suspect]
     Active Substance: ADAMTS13, RECOMBINANT-KRHN
     Indication: Thrombotic microangiopathy
     Dosage: UNK UNK, 2/WEEK
  2. ADAMTS13, RECOMBINANT-KRHN [Suspect]
     Active Substance: ADAMTS13, RECOMBINANT-KRHN
     Indication: Thrombotic thrombocytopenic purpura
     Dosage: UNK UNK, MONTHLY
  3. ADAMTS13, RECOMBINANT-KRHN [Suspect]
     Active Substance: ADAMTS13, RECOMBINANT-KRHN
  4. ADAMTS13, RECOMBINANT-KRHN [Suspect]
     Active Substance: ADAMTS13, RECOMBINANT-KRHN

REACTIONS (1)
  - Multimorbidity [Not Recovered/Not Resolved]
